FAERS Safety Report 19591008 (Version 1)
Quarter: 2021Q3

REPORT INFORMATION
  Report Type: Spontaneous
  Country: US (occurrence: US)
  Receive Date: 20210721
  Receipt Date: 20210721
  Transmission Date: 20211014
  Serious: No
  Sender: FDA-Public Use
  Company Number: US-SA-2021SA234024

PATIENT
  Age: 20 Year
  Sex: Male
  Weight: 83 kg

DRUGS (2)
  1. IMOGAM RABIES [Suspect]
     Active Substance: HUMAN RABIES VIRUS IMMUNE GLOBULIN
     Indication: ANIMAL BITE
     Dosage: UNK
     Route: 030
     Dates: start: 20210713
  2. IMOVAX RABIES [Concomitant]
     Active Substance: RABIES VIRUS STRAIN PM-1503-3M ANTIGEN (PROPIOLACTONE INACTIVATED)
     Indication: IMMUNISATION
     Route: 065
     Dates: start: 20210713

REACTIONS (1)
  - Wrong technique in product usage process [Unknown]

NARRATIVE: CASE EVENT DATE: 20210713
